FAERS Safety Report 17124995 (Version 1)
Quarter: 2019Q4

REPORT INFORMATION
  Report Type: Spontaneous
  Country: CN (occurrence: CN)
  Receive Date: 20191206
  Receipt Date: 20191206
  Transmission Date: 20200122
  Serious: Yes (Hospitalization)
  Sender: FDA-Public Use
  Company Number: CN-CELGENEUS-CHN-20191111006

PATIENT
  Age: 71 Year
  Sex: Male
  Weight: 42 kg

DRUGS (10)
  1. SERPLULIMAB. [Concomitant]
     Active Substance: SERPLULIMAB
     Indication: LUNG NEOPLASM MALIGNANT
     Dosage: 191.3 MILLIGRAM
     Route: 041
     Dates: start: 20191029
  2. CARBOPLATIN. [Concomitant]
     Active Substance: CARBOPLATIN
     Indication: LUNG NEOPLASM MALIGNANT
     Dosage: 406.8 MILLIGRAM
     Route: 041
     Dates: start: 20191129
  3. LEUCOGEN [Concomitant]
     Active Substance: LEUCOGEN
     Indication: IMMUNE SYSTEM DISORDER
     Dosage: 60 MILLIGRAM
     Route: 048
     Dates: start: 20191030
  4. TROPISETRON HYDROCHLORIDE [Concomitant]
     Active Substance: TROPISETRON HYDROCHLORIDE
     Dosage: 5 MILLIGRAM
     Route: 041
     Dates: start: 20191119, end: 20191119
  5. ABRAXANE [Suspect]
     Active Substance: PACLITAXEL
     Indication: LUNG NEOPLASM MALIGNANT
     Dosage: 137.4 MILLIGRAM
     Route: 041
     Dates: start: 20191011, end: 20191126
  6. LANSOPRAZOLE. [Concomitant]
     Active Substance: LANSOPRAZOLE
     Dosage: 30 MILLIGRAM
     Route: 041
     Dates: start: 20191119, end: 20191119
  7. ONDANSETRON HYDROCHLORIDE. [Concomitant]
     Active Substance: ONDANSETRON HYDROCHLORIDE
     Indication: ANTIEMETIC SUPPORTIVE CARE
     Dosage: 24 MILLIGRAM
     Route: 048
     Dates: start: 20191030
  8. COMPOUND METHOXYPHENAMINE [Concomitant]
     Indication: TACHYPNOEA
     Dosage: 6 IU (INTERNATIONAL UNIT)
     Route: 048
     Dates: start: 20191113
  9. LANSOPRAZOLE. [Concomitant]
     Active Substance: LANSOPRAZOLE
     Indication: PROPHYLAXIS
     Dosage: 30 MILLIGRAM
     Route: 041
     Dates: start: 20191112, end: 20191112
  10. TROPISETRON HYDROCHLORIDE [Concomitant]
     Active Substance: TROPISETRON HYDROCHLORIDE
     Indication: ANTIEMETIC SUPPORTIVE CARE
     Dosage: 5 MILLIGRAM
     Route: 041
     Dates: start: 20191112, end: 20191112

REACTIONS (1)
  - Pain [Not Recovered/Not Resolved]

NARRATIVE: CASE EVENT DATE: 20191017
